FAERS Safety Report 11214984 (Version 4)
Quarter: 2016Q2

REPORT INFORMATION
  Report Type: Report from Study
  Country: KR (occurrence: KR)
  Receive Date: 20150624
  Receipt Date: 20160506
  Transmission Date: 20160815
  Serious: No
  Sender: FDA-Public Use
  Company Number: PHHY2015KR075956

PATIENT
  Sex: Female

DRUGS (4)
  1. LIPITOR [Concomitant]
     Active Substance: ATORVASTATIN CALCIUM
     Indication: HYPERLIPIDAEMIA
     Dosage: UNK UNK,
     Route: 065
     Dates: start: 2015
  2. RENALMIN [Concomitant]
     Indication: PROTEINURIA
     Dosage: UNK UNK,
     Route: 065
     Dates: start: 2015
  3. TASIGNA [Suspect]
     Active Substance: NILOTINIB
     Indication: CHRONIC MYELOID LEUKAEMIA
     Dosage: 300 MG, BID (600 MG, DAILY)
     Route: 048
     Dates: start: 20150427
  4. OLDECA [Concomitant]
     Indication: HYPERTENSION
     Dosage: UNK UNK,
     Route: 065

REACTIONS (2)
  - Urticaria [Recovered/Resolved]
  - Dyspepsia [Recovered/Resolved]

NARRATIVE: CASE EVENT DATE: 2015
